FAERS Safety Report 14670022 (Version 2)
Quarter: 2018Q1

REPORT INFORMATION
  Report Type: Spontaneous
  Country: US (occurrence: US)
  Receive Date: 20180322
  Receipt Date: 20180326
  Transmission Date: 20180509
  Serious: No
  Sender: FDA-Public Use
  Company Number: US-PFIZER INC-2018115894

PATIENT
  Age: 71 Year
  Sex: Female
  Weight: 63.49 kg

DRUGS (1)
  1. LYRICA [Suspect]
     Active Substance: PREGABALIN
     Indication: NEUROPATHY PERIPHERAL
     Dosage: 150 MG, TWICE A DAY (IN THE MORNING AND AT NIGHT)

REACTIONS (6)
  - Constipation [Unknown]
  - Anal incontinence [Unknown]
  - Cognitive disorder [Unknown]
  - Feeling abnormal [Unknown]
  - Confusional state [Unknown]
  - Product use in unapproved indication [Unknown]
